FAERS Safety Report 12512324 (Version 1)
Quarter: 2016Q2

REPORT INFORMATION
  Report Type: Spontaneous
  Country: US (occurrence: US)
  Receive Date: 20160630
  Receipt Date: 20160630
  Transmission Date: 20160815
  Serious: No
  Sender: FDA-Public Use
  Company Number: US-JNJFOC-20160520225

PATIENT
  Age: 48 Year
  Sex: Male
  Weight: 106.6 kg

DRUGS (1)
  1. SYLVANT [Suspect]
     Active Substance: SILTUXIMAB
     Indication: CASTLEMAN^S DISEASE
     Route: 042

REACTIONS (3)
  - Injection site extravasation [Unknown]
  - Poor venous access [Unknown]
  - Injection site swelling [Unknown]
